FAERS Safety Report 7965273-7 (Version None)
Quarter: 2011Q4

REPORT INFORMATION
  Report Type: 
  Country: None (occurrence: None)
  Receive Date: 20111121
  Receipt Date: 20111005
  Transmission Date: 20120403
  Serious: No
  Sender: FDA-Public Use
  Company Number: 1000024468

PATIENT
  Sex: Female

DRUGS (2)
  1. LEXAPRO (ESCITALOPRAM OXALATE) (ESCITALOPRAM OXALATE) [Concomitant]
  2. VIIBRYD [Suspect]
     Dosage: 10 MG (10 MG,1 IN 1 D),ORAL
     Route: 048

REACTIONS (1)
  - VOMITING [None]
